FAERS Safety Report 6780302-4 (Version None)
Quarter: 2010Q2

REPORT INFORMATION
  Report Type: 
  Country: None (occurrence: None)
  Receive Date: 20100618
  Receipt Date: 20100607
  Transmission Date: 20101027
  Serious: Yes (Hospitalization)
  Sender: FDA-Public Use
  Company Number: US-ELI_LILLY_AND_COMPANY-US200910007859

PATIENT
  Sex: Female

DRUGS (14)
  1. FORTEO [Suspect]
     Indication: OSTEOPOROSIS
     Dosage: 20 UG, UNK
     Dates: start: 20090501, end: 20091001
  2. VITAMIN D [Concomitant]
     Dosage: UNK, UNK
  3. VITAMIN C [Concomitant]
  4. PREDNISONE [Concomitant]
  5. SYNTHROID [Concomitant]
  6. ADVAIR DISKUS 100/50 [Concomitant]
  7. SPIRIVA [Concomitant]
  8. OXYCONTIN [Concomitant]
  9. NORCO [Concomitant]
  10. SINEMET [Concomitant]
  11. NEURONTIN [Concomitant]
  12. LEXAPRO [Concomitant]
  13. CARDIZEM [Concomitant]
  14. PREVACID [Concomitant]

REACTIONS (10)
  - CHRONIC OBSTRUCTIVE PULMONARY DISEASE [None]
  - DYSPHAGIA [None]
  - FALL [None]
  - MOVEMENT DISORDER [None]
  - PNEUMONIA ASPIRATION [None]
  - RESTLESS LEGS SYNDROME [None]
  - TREMOR [None]
  - VITAMIN D DECREASED [None]
  - VITAMIN E DECREASED [None]
  - VITAMIN K DECREASED [None]
